FAERS Safety Report 22595805 (Version 3)
Quarter: 2023Q2

REPORT INFORMATION
  Report Type: Report from Study
  Country: FR (occurrence: FR)
  Receive Date: 20230613
  Receipt Date: 20230622
  Transmission Date: 20230721
  Serious: No
  Sender: FDA-Public Use
  Company Number: FR-ALNYLAM PHARMACEUTICALS, INC.-ALN-2023-002689

PATIENT

DRUGS (1)
  1. AMVUTTRA [Suspect]
     Active Substance: VUTRISIRAN
     Indication: Product used for unknown indication
     Dosage: UNK
     Route: 065

REACTIONS (5)
  - Chills [Unknown]
  - Diarrhoea [Unknown]
  - Immune system disorder [Unknown]
  - Nasopharyngitis [Unknown]
  - Oropharyngeal pain [Unknown]
